FAERS Safety Report 13580666 (Version 1)
Quarter: 2017Q2

REPORT INFORMATION
  Report Type: Spontaneous
  Country: US (occurrence: US)
  Receive Date: 20170525
  Receipt Date: 20170525
  Transmission Date: 20170830
  Serious: Yes (Hospitalization)
  Sender: FDA-Public Use
  Company Number: US-JUBILANT CADISTA PHARMACEUTICALS-2017JUB00151

PATIENT
  Age: 54 Year
  Sex: Female
  Weight: 61.22 kg

DRUGS (4)
  1. PREDNISONE. [Suspect]
     Active Substance: PREDNISONE
     Indication: SCIATICA
     Dosage: UNK, AS DIRECTED RESTARTED THEN TOOK FOR 5 DAYS AND STOPPED
     Route: 048
     Dates: start: 20141205, end: 20141209
  2. ZITHROMAX [Suspect]
     Active Substance: AZITHROMYCIN DIHYDRATE
     Indication: SINUSITIS
     Dosage: UNK, AS DIRECTED
     Dates: start: 20120208, end: 20120212
  3. ZITHROMAX [Suspect]
     Active Substance: AZITHROMYCIN DIHYDRATE
     Indication: SCIATICA
     Dosage: UNK, AS DIRECTED
     Route: 048
     Dates: start: 20141205, end: 20141209
  4. PREDNISONE. [Suspect]
     Active Substance: PREDNISONE
     Indication: SINUSITIS
     Dosage: UNK, AS DIRECTED TOOK FOR 5 DAYS THEN STOPPED
     Route: 048
     Dates: start: 20120208, end: 20120212

REACTIONS (3)
  - Malaise [Recovered/Resolved]
  - Hepatic failure [Recovered/Resolved]
  - Pancreatitis [Recovered/Resolved]

NARRATIVE: CASE EVENT DATE: 201202
